FAERS Safety Report 15213856 (Version 1)
Quarter: 2018Q3

REPORT INFORMATION
  Report Type: Spontaneous
  Country: NL (occurrence: NL)
  Receive Date: 20180730
  Receipt Date: 20180730
  Transmission Date: 20181010
  Serious: Yes (Other)
  Sender: FDA-Public Use
  Company Number: PHHY2018NL054677

PATIENT
  Age: 73 Year
  Sex: Female

DRUGS (1)
  1. AMOXICILLIN + CLAVULANATE POTASSIUM [Suspect]
     Active Substance: AMOXICILLIN\CLAVULANATE POTASSIUM
     Indication: PNEUMONIA
     Route: 051

REACTIONS (12)
  - Kounis syndrome [Unknown]
  - Oxygen saturation decreased [Unknown]
  - Troponin increased [Unknown]
  - Blood creatine phosphokinase increased [Unknown]
  - Anaphylactic shock [Unknown]
  - Rash [Unknown]
  - Hypotension [Unknown]
  - Electrocardiogram ST segment elevation [Unknown]
  - Tachycardia [Unknown]
  - Tryptase increased [Unknown]
  - Blood creatine phosphokinase MB increased [Unknown]
  - Respiratory arrest [Unknown]
